FAERS Safety Report 4630462-6 (Version None)
Quarter: 2005Q2

REPORT INFORMATION
  Report Type: 
  Country: None (occurrence: None)
  Receive Date: 20050406
  Receipt Date: 20050317
  Transmission Date: 20051028
  Serious: Yes (Death)
  Sender: FDA-Public Use
  Company Number: USA050393523

PATIENT
  Age: 55 Year
  Sex: Male

DRUGS (1)
  1. HUMULIN-HUMAN INSULIN (RDNA)  UNKNOWN FORMULATION (HU [Suspect]

REACTIONS (1)
  - ACUTE MYOCARDIAL INFARCTION [None]
